FAERS Safety Report 8962144 (Version 1)
Quarter: 2012Q4

REPORT INFORMATION
  Report Type: 
  Country: PL (occurrence: PL)
  Receive Date: 20121212
  Receipt Date: 20121212
  Transmission Date: 20130627
  Serious: Yes (Hospitalization)
  Sender: FDA-Public Use
  Company Number: PL-ASTRAZENECA-2012SE91633

PATIENT
  Age: 79 Year
  Sex: Male

DRUGS (3)
  1. ZOLADEX LA [Suspect]
     Indication: PROSTATE CANCER
     Route: 058
     Dates: start: 201104
  2. ASA [Concomitant]
  3. VITAMIN D3-CALCIUM CARBONATE [Concomitant]

REACTIONS (1)
  - Ischaemic stroke [Recovering/Resolving]
